FAERS Safety Report 19189267 (Version 2)
Quarter: 2021Q3

REPORT INFORMATION
  Report Type: Spontaneous
  Country: US (occurrence: US)
  Receive Date: 20210428
  Receipt Date: 20210728
  Transmission Date: 20211014
  Serious: Yes (Other)
  Sender: FDA-Public Use
  Company Number: US-BRISTOL-MYERS SQUIBB COMPANY-BMS-2021-038012

PATIENT
  Age: 72 Year
  Sex: Male
  Weight: 64.09 kg

DRUGS (7)
  1. LORTAB [LORATADINE] [Concomitant]
     Active Substance: LORATADINE
     Indication: PRODUCT USED FOR UNKNOWN INDICATION
     Dosage: UNK
     Route: 065
  2. ASPIRIN [ACETYLSALICYLIC ACID] [Concomitant]
     Active Substance: ASPIRIN
     Indication: PRODUCT USED FOR UNKNOWN INDICATION
     Dosage: UNK
     Route: 065
  3. OPDIVO [Suspect]
     Active Substance: NIVOLUMAB
     Indication: EPITHELIOID MESOTHELIOMA
     Dosage: 196 MILLIGRAM, Q3WK
     Route: 042
     Dates: start: 20210326
  4. YERVOY [Suspect]
     Active Substance: IPILIMUMAB
     Indication: EPITHELIOID MESOTHELIOMA
     Dosage: 65 MILLIGRAM, Q3WK
     Route: 042
     Dates: start: 20210326
  5. CLARITIN [CLARITHROMYCIN] [Concomitant]
     Active Substance: CLARITHROMYCIN
     Indication: PRODUCT USED FOR UNKNOWN INDICATION
     Dosage: UNK
     Route: 065
  6. GABAPENTIN. [Concomitant]
     Active Substance: GABAPENTIN
     Indication: PRODUCT USED FOR UNKNOWN INDICATION
     Dosage: UNK
     Route: 065
  7. VITAMIN B12 [Concomitant]
     Active Substance: CYANOCOBALAMIN
     Indication: PRODUCT USED FOR UNKNOWN INDICATION
     Dosage: UNK
     Route: 065

REACTIONS (2)
  - Deafness [Unknown]
  - Back pain [Unknown]

NARRATIVE: CASE EVENT DATE: 20210416
